FAERS Safety Report 8271977-1 (Version None)
Quarter: 2012Q1

REPORT INFORMATION
  Report Type: 
  Country: None (occurrence: None)
  Receive Date: 20120312
  Receipt Date: 20111214
  Transmission Date: 20120608
  Serious: No
  Sender: FDA-Public Use
  Company Number: 2011SP058380

PATIENT
  Sex: Male

DRUGS (1)
  1. SAPHRIS [Suspect]
     Indication: SCHIZOAFFECTIVE DISORDER
     Dosage: SL
     Route: 060

REACTIONS (2)
  - WEIGHT DECREASED [None]
  - OFF LABEL USE [None]
